FAERS Safety Report 9951823 (Version 1)
Quarter: 2014Q1

REPORT INFORMATION
  Report Type: Report from Study
  Country: US (occurrence: US)
  Receive Date: 20140304
  Receipt Date: 20140304
  Transmission Date: 20141002
  Serious: Yes (Other)
  Sender: FDA-Public Use
  Company Number: US-ABBVIE-13P-163-1079598-00

PATIENT
  Sex: Female
  Weight: 60.84 kg

DRUGS (6)
  1. HUMIRA [Suspect]
     Indication: RHEUMATOID ARTHRITIS
     Dates: start: 201210, end: 201304
  2. HUMIRA [Suspect]
     Indication: PSORIATIC ARTHROPATHY
  3. CYMBALTA [Concomitant]
     Indication: FIBROMYALGIA
  4. PLAQUENIL [Concomitant]
     Indication: SJOGREN^S SYNDROME
  5. CLONOPIN [Concomitant]
     Indication: RESTLESS LEGS SYNDROME
  6. RESTASIS [Concomitant]
     Indication: DRY EYE

REACTIONS (1)
  - Toe operation [Recovering/Resolving]
